FAERS Safety Report 5412917-X (Version None)
Quarter: 2007Q3

REPORT INFORMATION
  Report Type: 
  Country: None (occurrence: None)
  Receive Date: 20070813
  Receipt Date: 20070801
  Transmission Date: 20080115
  Serious: Yes (Other)
  Sender: FDA-Public Use
  Company Number: US-PFIZER INC-2006029551

PATIENT
  Sex: Female

DRUGS (1)
  1. BEXTRA [Suspect]
     Indication: BACK PAIN

REACTIONS (4)
  - BLOOD GLUCOSE INCREASED [None]
  - DISEASE RECURRENCE [None]
  - STASIS DERMATITIS [None]
  - STEVENS-JOHNSON SYNDROME [None]
